FAERS Safety Report 22005040 (Version 2)
Quarter: 2023Q1

REPORT INFORMATION
  Report Type: Spontaneous
  Country: US (occurrence: US)
  Receive Date: 20230217
  Receipt Date: 20230321
  Transmission Date: 20230417
  Serious: Yes (Hospitalization, Other)
  Sender: FDA-Public Use
  Company Number: US-BAXTER-2023BAX013064

PATIENT
  Sex: Male

DRUGS (3)
  1. DIANEAL FOR PERITONEAL DIALYSIS [Suspect]
     Active Substance: ANHYDROUS DEXTROSE\CALCIUM CHLORIDE\MAGNESIUM CHLORIDE\SODIUM CHLORIDE\SODIUM LACTATE
     Route: 033
  2. DIANEAL [Suspect]
     Active Substance: CALCIUM CHLORIDE\DEXTROSE\MAGNESIUM CHLORIDE\SODIUM CHLORIDE\SODIUM LACTATE
     Indication: End stage renal disease
     Dosage: VIA MANUAL
     Route: 033
     Dates: start: 2019, end: 2019
  3. DIANEAL [Suspect]
     Active Substance: CALCIUM CHLORIDE\DEXTROSE\MAGNESIUM CHLORIDE\SODIUM CHLORIDE\SODIUM LACTATE
     Dosage: VIA CYCLER, 4 CYCLES
     Route: 033
     Dates: start: 2019, end: 20230117

REACTIONS (6)
  - End stage renal disease [Recovered/Resolved]
  - Hernia [Recovered/Resolved]
  - Condition aggravated [Recovered/Resolved]
  - Intestinal obstruction [Recovered/Resolved]
  - Constipation [Unknown]
  - Anuria [Recovered/Resolved]
